FAERS Safety Report 5381877-2 (Version None)
Quarter: 2007Q3

REPORT INFORMATION
  Report Type: 
  Country: None (occurrence: None)
  Receive Date: 20070709
  Receipt Date: 20070629
  Transmission Date: 20080115
  Serious: Yes (Hospitalization)
  Sender: FDA-Public Use
  Company Number: DE-ROCHE-502635

PATIENT
  Age: 43 Year
  Sex: Male
  Weight: 82 kg

DRUGS (3)
  1. RIBAVIRIN [Suspect]
     Indication: HEPATITIS C
     Dosage: DOSING REGIMEN REPORTED AS 500 DAILY.
     Route: 048
     Dates: start: 20060301, end: 20070101
  2. PEG-INTRON [Suspect]
     Indication: HEPATITIS C
     Dosage: REPORTED AS PEGINTRON.
     Route: 065
     Dates: start: 20060301, end: 20070101
  3. SUBUTEX [Concomitant]

REACTIONS (1)
  - SCHIZOAFFECTIVE DISORDER [None]
